FAERS Safety Report 5212669-2 (Version None)
Quarter: 2007Q1

REPORT INFORMATION
  Report Type: 
  Country: None (occurrence: None)
  Receive Date: 20070118
  Receipt Date: 20070108
  Transmission Date: 20070707
  Serious: Yes (Death, Hospitalization)
  Sender: FDA-Public Use
  Company Number: FR-PFIZER INC-2007004049

PATIENT
  Age: 33 Year
  Sex: Male

DRUGS (4)
  1. HYDROXYZINE HYDROCHLORIDE (TABLET) [Suspect]
     Route: 048
  2. CYAMEMAZINE [Suspect]
     Route: 048
  3. ARIPIPRAZOLE [Suspect]
     Route: 048
  4. IBUPROFEN [Suspect]
     Route: 048

REACTIONS (2)
  - ABDOMINAL DISTENSION [None]
  - ABDOMINAL PAIN [None]
